FAERS Safety Report 13175819 (Version 2)
Quarter: 2017Q1

REPORT INFORMATION
  Report Type: Spontaneous
  Country: JP (occurrence: JP)
  Receive Date: 20170201
  Receipt Date: 20170310
  Transmission Date: 20170428
  Serious: Yes (Hospitalization, Other)
  Sender: FDA-Public Use
  Company Number: JP-GILEAD-2017-0256007

PATIENT
  Age: 79 Year
  Sex: Female

DRUGS (8)
  1. MAINTATE [Concomitant]
     Active Substance: BISOPROLOL FUMARATE
  2. HERBESSER [Concomitant]
     Active Substance: DILTIAZEM HYDROCHLORIDE
  3. BETANIS [Concomitant]
     Active Substance: MIRABEGRON
  4. ALDACTONE A [Concomitant]
     Active Substance: SPIRONOLACTONE
  5. HARVONI [Suspect]
     Active Substance: LEDIPASVIR\SOFOSBUVIR
     Indication: HEPATITIS C
     Dosage: 1 DF, QD
     Route: 048
     Dates: start: 20161027, end: 20170119
  6. ONON [Concomitant]
     Active Substance: PRANLUKAST
  7. XYZAL [Concomitant]
     Active Substance: LEVOCETIRIZINE DIHYDROCHLORIDE
  8. XARELTO [Concomitant]
     Active Substance: RIVAROXABAN

REACTIONS (4)
  - Anaemia [Recovered/Resolved]
  - Haemorrhage intracranial [Unknown]
  - Faeces discoloured [Unknown]
  - Abdominal pain upper [Recovered/Resolved]

NARRATIVE: CASE EVENT DATE: 2017
